FAERS Safety Report 13792066 (Version 1)
Quarter: 2017Q3

REPORT INFORMATION
  Report Type: Spontaneous
  Country: US (occurrence: US)
  Receive Date: 20170725
  Receipt Date: 20170725
  Transmission Date: 20171127
  Serious: No
  Sender: FDA-Public Use
  Company Number: US-ROCHE-1920262

PATIENT
  Sex: Female

DRUGS (1)
  1. ESBRIET [Suspect]
     Active Substance: PIRFENIDONE
     Indication: CHRONIC KIDNEY DISEASE
     Dosage: 3 TABLETS
     Route: 048
     Dates: start: 20170301

REACTIONS (1)
  - Abdominal pain upper [Unknown]
